FAERS Safety Report 9264250 (Version 2)
Quarter: 2013Q2

REPORT INFORMATION
  Report Type: Report from Study
  Country: US (occurrence: US)
  Receive Date: 20130430
  Receipt Date: 20130516
  Transmission Date: 20140414
  Serious: Yes (Other)
  Sender: FDA-Public Use
  Company Number: US-US-EMD SERONO, INC.-7207460

PATIENT
  Sex: Male

DRUGS (2)
  1. REBIF [Suspect]
     Indication: MULTIPLE SCLEROSIS
     Route: 058
     Dates: start: 20070201
  2. CARBAMAZEPINE [Concomitant]
     Indication: PAIN

REACTIONS (2)
  - Prostate cancer [Not Recovered/Not Resolved]
  - Hypertension [Not Recovered/Not Resolved]
